FAERS Safety Report 6748090-5 (Version None)
Quarter: 2010Q2

REPORT INFORMATION
  Report Type: 
  Country: None (occurrence: None)
  Receive Date: 20100531
  Receipt Date: 20100519
  Transmission Date: 20101027
  Serious: No
  Sender: FDA-Public Use
  Company Number: FR-JNJFOC-20100509071

PATIENT
  Sex: Male

DRUGS (1)
  1. DURAGESIC-100 [Suspect]
     Indication: MUSCLE FIBROSIS
     Dosage: 25 MCG/HR EVERY 3 DAYS AND 12.5 MCG/HR ON D3
     Route: 062

REACTIONS (4)
  - DIARRHOEA [None]
  - INAPPROPRIATE SCHEDULE OF DRUG ADMINISTRATION [None]
  - NAUSEA [None]
  - VISION BLURRED [None]
